FAERS Safety Report 5215734-9 (Version None)
Quarter: 2007Q1

REPORT INFORMATION
  Report Type: 
  Country: None (occurrence: None)
  Receive Date: 20070123
  Receipt Date: 20070110
  Transmission Date: 20070707
  Serious: Yes (Hospitalization)
  Sender: FDA-Public Use
  Company Number: US-ELI_LILLY_AND_COMPANY-US200701001866

PATIENT
  Age: 66 Year
  Sex: Male

DRUGS (21)
  1. FORTEO [Suspect]
     Dosage: UNK, UNK
  2. PREDNISONE TAB [Concomitant]
     Indication: CROHN'S DISEASE
     Dosage: 15 MG, DAILY (1/D)
  3. ATENOLOL [Concomitant]
     Dosage: UNK UNK,
  4. IMDUR [Concomitant]
     Dosage: UNK UNK, UNKNOWN
  5. IMURAN [Concomitant]
     Dosage: UNK UNK, UNKNOWN
  6. LEXAPRO /USA/ [Concomitant]
     Dosage: UNK UNK, UNKNOWN
  7. SINEMET                                 /NET/ [Concomitant]
     Dosage: UNK UNK, UNKNOWN
  8. IMODIUM [Concomitant]
     Dosage: UNK UNK, UNKNOWN
  9. CARAFATE                                /USA/ [Concomitant]
     Dosage: UNK UNK, UNKNOWN
  10. LASIX [Concomitant]
     Dosage: UNK UNK, UNKNOWN
  11. NEURONTIN [Concomitant]
     Dosage: UNK UNK, UNKNOWN
  12. HYDROCHLOROTHIAZIDE [Concomitant]
     Dosage: UNK UNK, UNKNOWN
  13. FOLIC ACID [Concomitant]
     Dosage: UNK UNK, UNKNOWN
  14. SPIRIVA [Concomitant]
     Dosage: UNK UNK, UNKNOWN
  15. VISEROL [Concomitant]
     Indication: NAUSEA
     Dosage: UNK UNK, AS NEEDED
  16. MYCILLIN [Concomitant]
     Dosage: UNK UNK, UNKNOWN
  17. ASMANEX /CAN/ [Concomitant]
     Dosage: UNK UNK, UNKNOWN
  18. SOLU-MEDROL [Concomitant]
     Dosage: UNK UNK, UNKNOWN
  19. DEMEROL                                 /CAN/ [Concomitant]
     Dosage: UNK UNK, UNKNOWN
  20. PROPOXYPHENE HYDROCHLORIDE [Concomitant]
     Dosage: UNK UNK, UNKNOWN
  21. LIDOCAINE HCL [Concomitant]
     Dosage: CONTINUOUS INFUSION

REACTIONS (4)
  - CORONARY ARTERY DISEASE [None]
  - GASTROINTESTINAL HAEMORRHAGE [None]
  - VENTRICULAR EXTRASYSTOLES [None]
  - VENTRICULAR TACHYCARDIA [None]
